FAERS Safety Report 4647950-9 (Version None)
Quarter: 2005Q2

REPORT INFORMATION
  Report Type: 
  Country: None (occurrence: None)
  Receive Date: 20050428
  Receipt Date: 20050418
  Transmission Date: 20051028
  Serious: Yes (Hospitalization)
  Sender: FDA-Public Use
  Company Number: GB-ABBOTT-05P-167-0298171-00

PATIENT
  Sex: Male

DRUGS (3)
  1. KALETRA [Suspect]
     Indication: DRUG USE FOR UNKNOWN INDICATION
     Dates: start: 20020401
  2. TENOFOVIR [Concomitant]
     Indication: DRUG USE FOR UNKNOWN INDICATION
     Dates: start: 20020401
  3. LAMIVUDINE [Concomitant]
     Indication: DRUG USE FOR UNKNOWN INDICATION
     Dates: start: 19961001

REACTIONS (2)
  - BRONCHOPNEUMONIA [None]
  - CHRONIC OBSTRUCTIVE AIRWAYS DISEASE EXACERBATED [None]
